FAERS Safety Report 20038668 (Version 2)
Quarter: 2021Q4

REPORT INFORMATION
  Report Type: Spontaneous
  Country: FR (occurrence: FR)
  Receive Date: 20211105
  Receipt Date: 20211117
  Transmission Date: 20220303
  Serious: Yes (Death)
  Sender: FDA-Public Use
  Company Number: None

PATIENT
  Age: 87 Year
  Sex: Female

DRUGS (1)
  1. MORPHINE SULFATE [Suspect]
     Active Substance: MORPHINE SULFATE
     Indication: Pain
     Dosage: UNK (22 MG AU TOTAL)
     Route: 048
     Dates: start: 20211016, end: 20211016

REACTIONS (3)
  - Coma [Fatal]
  - Respiratory distress [Fatal]
  - Product administration error [Fatal]

NARRATIVE: CASE EVENT DATE: 20211016
